FAERS Safety Report 8977544 (Version 1)
Quarter: 2012Q4

REPORT INFORMATION
  Report Type: Report from Study
  Country: US (occurrence: US)
  Receive Date: 20121219
  Receipt Date: 20121219
  Transmission Date: 20130627
  Serious: Yes (Other)
  Sender: FDA-Public Use
  Company Number: US-JNJFOC-20121206587

PATIENT
  Sex: Female
  Weight: 85.73 kg

DRUGS (3)
  1. REMICADE [Suspect]
     Indication: RHEUMATOID ARTHRITIS
     Dosage: began Remicade about 4 years ago
     Route: 042
     Dates: start: 2008, end: 201208
  2. METHOTREXATE [Concomitant]
     Indication: ARTHRITIS
  3. ANTIINFLAMMATORY NOS [Concomitant]

REACTIONS (5)
  - Disability [Unknown]
  - Arthritis [Unknown]
  - Cutaneous lupus erythematosus [Unknown]
  - Rash [Recovering/Resolving]
  - DNA antibody positive [Unknown]
